FAERS Safety Report 6111882-X (Version None)
Quarter: 2009Q1

REPORT INFORMATION
  Report Type: 
  Country: None (occurrence: None)
  Receive Date: 20090311
  Receipt Date: 20090225
  Transmission Date: 20090719
  Serious: Yes (Hospitalization)
  Sender: FDA-Public Use
  Company Number: US-WATSON-2008-07514

PATIENT
  Sex: Female

DRUGS (10)
  1. FENTANYL-25 [Suspect]
     Indication: PAIN
     Dosage: 1 PATCH, Q 72 HOURS
     Route: 062
     Dates: start: 20081119, end: 20081126
  2. FENTANYL-25 [Suspect]
     Dosage: 1 PATCH, Q 72 HOURS
     Route: 062
     Dates: start: 20080819, end: 20081118
  3. FENTANYL-50 [Suspect]
     Indication: PAIN
     Dosage: 1 PATCH, Q 72 HOURS
     Route: 062
     Dates: start: 20080617, end: 20080818
  4. FENTANYL-50 [Suspect]
     Dosage: 1 PATCH, Q 72 HOURS
     Route: 062
     Dates: start: 20080325, end: 20080519
  5. AMLODIPINE [Concomitant]
     Indication: DRUG USE FOR UNKNOWN INDICATION
     Dosage: DAILY
     Route: 065
  6. FLEXERIL [Concomitant]
     Indication: DRUG USE FOR UNKNOWN INDICATION
     Dosage: 10 MG, Q8H
     Route: 065
  7. HYZAAR [Concomitant]
     Indication: DRUG USE FOR UNKNOWN INDICATION
     Dosage: ONE TABLET DAILY
     Route: 065
  8. MULTI-VITAMINS [Concomitant]
     Indication: DRUG USE FOR UNKNOWN INDICATION
     Dosage: UNKNOWN
     Route: 065
  9. NORCO [Concomitant]
     Indication: PAIN
     Dosage: ONE TABLET, Q 6 HRS, PRN
     Route: 048
  10. POTASSIUM CHLORIDE [Concomitant]
     Indication: DRUG USE FOR UNKNOWN INDICATION

REACTIONS (9)
  - AMNESIA [None]
  - COMPLEX PARTIAL SEIZURES [None]
  - CONFUSIONAL STATE [None]
  - ENCEPHALOPATHY [None]
  - GRAND MAL CONVULSION [None]
  - LETHARGY [None]
  - LOSS OF CONSCIOUSNESS [None]
  - NAUSEA [None]
  - POSTICTAL STATE [None]
